FAERS Safety Report 10745981 (Version 3)
Quarter: 2015Q1

REPORT INFORMATION
  Report Type: Spontaneous
  Country: US (occurrence: US)
  Receive Date: 20150128
  Receipt Date: 20150317
  Transmission Date: 20150721
  Serious: Yes (Other)
  Sender: FDA-Public Use
  Company Number: US-BAYER-2015-006523

PATIENT
  Age: 86 Year
  Sex: Female
  Weight: 63.49 kg

DRUGS (3)
  1. BAYER GENUINE ASPIRIN [Suspect]
     Active Substance: ASPIRIN
     Indication: ANTICOAGULANT THERAPY
  2. ALEVE [Suspect]
     Active Substance: NAPROXEN SODIUM
     Indication: PARAESTHESIA
     Dosage: 1 DF, QD
     Route: 048
     Dates: start: 201111
  3. BAYER GENUINE ASPIRIN [Suspect]
     Active Substance: ASPIRIN
     Indication: CARDIOVASCULAR DISORDER
     Dosage: 1 DF, QD
     Route: 048
     Dates: start: 201111, end: 201501

REACTIONS (8)
  - Product use issue [Unknown]
  - Medication error [Unknown]
  - Paraesthesia [Recovered/Resolved]
  - Incorrect drug administration duration [Unknown]
  - Wrong technique in drug usage process [Unknown]
  - Gangrene [Recovered/Resolved]
  - Toe amputation [Recovered/Resolved]
  - Skeletal injury [Recovered/Resolved]

NARRATIVE: CASE EVENT DATE: 2011
